FAERS Safety Report 4377118-5 (Version None)
Quarter: 2004Q2

REPORT INFORMATION
  Report Type: 
  Country: None (occurrence: None)
  Receive Date: 20040615
  Receipt Date: 20040603
  Transmission Date: 20050107
  Serious: Yes (Hospitalization)
  Sender: FDA-Public Use
  Company Number: GB-BRISTOL-MYERS SQUIBB COMPANY-12604658

PATIENT
  Age: 56 Year
  Sex: Female
  Weight: 61 kg

DRUGS (7)
  1. CARBOPLATIN [Suspect]
     Indication: NON-SMALL CELL LUNG CANCER
     Route: 042
     Dates: start: 20040426, end: 20040426
  2. GEMCITABINE [Suspect]
     Indication: NON-SMALL CELL LUNG CANCER
     Route: 042
     Dates: start: 20040426, end: 20040426
  3. THALIDOMIDE [Suspect]
     Indication: NON-SMALL CELL LUNG CANCER
     Route: 048
     Dates: start: 20040504
  4. PLACEBO [Suspect]
     Indication: NON-SMALL CELL LUNG CANCER
     Route: 048
     Dates: start: 20040504
  5. MORPHINE SULFATE [Concomitant]
     Route: 048
     Dates: start: 20040426
  6. AMITRIPTYLINE HCL [Concomitant]
     Route: 048
     Dates: start: 20040201
  7. NAPROXEN [Concomitant]
     Route: 048
     Dates: start: 20040301

REACTIONS (2)
  - PANCYTOPENIA [None]
  - THROMBOCYTOPENIC PURPURA [None]
